FAERS Safety Report 13159834 (Version 2)
Quarter: 2017Q1

REPORT INFORMATION
  Report Type: Report from Study
  Country: BR (occurrence: BR)
  Receive Date: 20170127
  Receipt Date: 20170130
  Transmission Date: 20170428
  Serious: Yes (Other)
  Sender: FDA-Public Use
  Company Number: PHHY2017BR011398

PATIENT
  Sex: Male
  Weight: 100 kg

DRUGS (3)
  1. CARBAMAZEPINE. [Suspect]
     Active Substance: CARBAMAZEPINE
     Indication: SEIZURE
     Dosage: 200 MG, TID
     Route: 048
  2. TEGRETOL [Suspect]
     Active Substance: CARBAMAZEPINE
     Indication: AUTISM
     Dosage: 200 MG, TID
     Route: 048
  3. CARBAMAZEPINE. [Suspect]
     Active Substance: CARBAMAZEPINE
     Indication: AUTISM
     Dosage: 5 DF, ((2 TABLETS IN THE MORNING, 1 IN THE AFTERNOON AND 2 AT NIGHT))
     Route: 065
     Dates: end: 201610

REACTIONS (4)
  - Nervousness [Unknown]
  - Product use issue [Unknown]
  - Wrong technique in product usage process [Unknown]
  - Seizure [Not Recovered/Not Resolved]
